FAERS Safety Report 11203956 (Version 2)
Quarter: 2015Q3

REPORT INFORMATION
  Report Type: Report from Study
  Country: BR (occurrence: BR)
  Receive Date: 20150619
  Receipt Date: 20150723
  Transmission Date: 20151125
  Serious: Yes (Other)
  Sender: FDA-Public Use
  Company Number: PHHY2015BR071814

PATIENT
  Sex: Female
  Weight: 63 kg

DRUGS (1)
  1. ACLASTA [Suspect]
     Active Substance: ZOLEDRONIC ACID
     Indication: BONE DISORDER
     Dosage: 1 DF, (1 APPLICATION), YEARLY
     Route: 042
     Dates: start: 201403, end: 201403

REACTIONS (2)
  - Vitamin D decreased [Unknown]
  - Rib fracture [Recovered/Resolved]
